FAERS Safety Report 4365741-3 (Version None)
Quarter: 2004Q2

REPORT INFORMATION
  Report Type: 
  Country: None (occurrence: None)
  Receive Date: 20040527
  Receipt Date: 20030916
  Transmission Date: 20050107
  Serious: Yes (Life-Threatening)
  Sender: FDA-Public Use
  Company Number: BE-JNJFOC-20030602885

PATIENT
  Sex: Female
  Weight: 4.64 kg

DRUGS (2)
  1. PREPULSID [Suspect]
     Route: 065
     Dates: start: 20030522, end: 20030619
  2. ZANTAC [Concomitant]
     Indication: OESOPHAGITIS
     Route: 049
     Dates: start: 20030522

REACTIONS (2)
  - ELECTROCARDIOGRAM QT CORRECTED INTERVAL PROLONGED [None]
  - HEART RATE INCREASED [None]
